FAERS Safety Report 21044054 (Version 1)
Quarter: 2022Q3

REPORT INFORMATION
  Report Type: Spontaneous
  Country: CZ (occurrence: CZ)
  Receive Date: 20220705
  Receipt Date: 20220705
  Transmission Date: 20221026
  Serious: Yes (Other)
  Sender: FDA-Public Use
  Company Number: CZ-AMGEN-CZESP2022104373

PATIENT
  Age: 60 Year
  Sex: Male

DRUGS (4)
  1. OXALIPLATIN [Suspect]
     Active Substance: OXALIPLATIN
     Indication: Product used for unknown indication
     Dosage: UNK
     Route: 065
     Dates: start: 201608
  2. LEUCOVORIN [Suspect]
     Active Substance: LEUCOVORIN
     Indication: Product used for unknown indication
     Dosage: UNK
     Route: 065
     Dates: start: 201608
  3. FLUOROURACIL [Suspect]
     Active Substance: FLUOROURACIL
     Indication: Product used for unknown indication
     Dosage: UNK
     Route: 065
     Dates: start: 201608
  4. VECTIBIX [Suspect]
     Active Substance: PANITUMUMAB
     Indication: Product used for unknown indication
     Dosage: UNK
     Route: 065
     Dates: start: 201608

REACTIONS (6)
  - Stomal hernia [Recovered/Resolved]
  - Dermatitis acneiform [Unknown]
  - Haematotoxicity [Unknown]
  - Pulmonary embolism [Recovered/Resolved]
  - Hypersensitivity [Recovering/Resolving]
  - Fatigue [Unknown]
